FAERS Safety Report 21517753 (Version 1)
Quarter: 2022Q4

REPORT INFORMATION
  Report Type: Spontaneous
  Country: CN (occurrence: CN)
  Receive Date: 20221028
  Receipt Date: 20221028
  Transmission Date: 20230113
  Serious: Yes (Hospitalization, Other)
  Sender: FDA-Public Use
  Company Number: CN-UCBSA-2022061242

PATIENT
  Age: 64 Year
  Sex: Female

DRUGS (9)
  1. KEPPRA [Suspect]
     Active Substance: LEVETIRACETAM
     Indication: Traumatic intracranial haemorrhage
     Dosage: 0.5 GRAM, 2X/DAY (BID)
     Route: 048
     Dates: start: 20220724, end: 20220822
  2. KEPPRA [Suspect]
     Active Substance: LEVETIRACETAM
     Indication: Seizure prophylaxis
  3. ZYPREXA [Suspect]
     Active Substance: OLANZAPINE
     Indication: Traumatic intracranial haemorrhage
     Dosage: 2.5 MILLIGRAM, ONCE DAILY (QD)
     Route: 048
     Dates: start: 20220817, end: 20220822
  4. ZYPREXA [Suspect]
     Active Substance: OLANZAPINE
     Indication: Seizure prophylaxis
  5. VALPROATE SODIUM [Suspect]
     Active Substance: VALPROATE SODIUM
     Indication: Traumatic intracranial haemorrhage
     Dosage: 250 MILLIGRAM, ONCE DAILY (QD)
     Route: 048
     Dates: start: 20220817, end: 20220821
  6. VALPROATE SODIUM [Suspect]
     Active Substance: VALPROATE SODIUM
     Indication: Seizure prophylaxis
  7. AMBROXOL [Suspect]
     Active Substance: AMBROXOL
     Indication: Traumatic intracranial haemorrhage
     Dosage: 30 MILLIGRAM, 2X/DAY (BID)
     Route: 042
     Dates: start: 20220813, end: 20220822
  8. AMBROXOL [Suspect]
     Active Substance: AMBROXOL
     Indication: Pneumonia
  9. VALPROATE SODIUM [Suspect]
     Active Substance: VALPROATE SODIUM
     Indication: Seizure prophylaxis
     Dosage: UNK
     Dates: start: 20220721, end: 20220730

REACTIONS (5)
  - Thrombocytopenia [Recovered/Resolved]
  - Leukopenia [Recovering/Resolving]
  - Myelosuppression [Unknown]
  - Pneumonia [Unknown]
  - Product use in unapproved indication [Unknown]

NARRATIVE: CASE EVENT DATE: 20220724
